FAERS Safety Report 14081835 (Version 1)
Quarter: 2017Q4

REPORT INFORMATION
  Report Type: Spontaneous
  Country: US (occurrence: None)
  Receive Date: 20171013
  Receipt Date: 20171013
  Transmission Date: 20180321
  Serious: No
  Sender: FDA-Public Use
  Company Number: None

PATIENT

DRUGS (2)
  1. METHOTREXATE PRESERVATIVE FREE METHOTREXATE PF [Suspect]
     Active Substance: METHOTREXATE SODIUM
     Dosage: SIZE 2 ML
  2. METHOTREXATE INJECTION [Suspect]
     Active Substance: METHOTREXATE
     Dosage: SIZE 2 ML

REACTIONS (3)
  - Drug dispensing error [None]
  - Product preparation error [None]
  - Product label confusion [None]
